FAERS Safety Report 10227647 (Version 2)
Quarter: 2014Q2

REPORT INFORMATION
  Report Type: Spontaneous
  Country: CA (occurrence: CA)
  Receive Date: 20140610
  Receipt Date: 20140610
  Transmission Date: 20141212
  Serious: Yes (Life-Threatening, Other)
  Sender: FDA-Public Use
  Company Number: CA-SA-2014SA032055

PATIENT
  Sex: Male
  Weight: 71 kg

DRUGS (1)
  1. THYMOGLOBULIN [Suspect]
     Indication: RENAL TRANSPLANT
     Route: 042
     Dates: start: 20130508, end: 20130508

REACTIONS (4)
  - Renal impairment [Unknown]
  - Haematoma [Unknown]
  - Hypotension [Not Recovered/Not Resolved]
  - Inappropriate schedule of drug administration [Unknown]
